FAERS Safety Report 10583731 (Version 1)
Quarter: 2014Q4

REPORT INFORMATION
  Report Type: Spontaneous
  Country: JP (occurrence: None)
  Receive Date: 20141112
  Receipt Date: 20141112
  Transmission Date: 20150529
  Serious: Yes (Hospitalization)
  Sender: FDA-Public Use
  Company Number: IMP_08081_2014

PATIENT
  Age: 68 Year
  Sex: Male

DRUGS (2)
  1. CABERGOLINE (CABERGOLINE) [Suspect]
     Active Substance: CABERGOLINE
     Indication: PARKINSON^S DISEASE
     Route: 048
     Dates: start: 1996
  2. LEVODOPA [Suspect]
     Active Substance: LEVODOPA
     Indication: PARKINSON^S DISEASE
     Route: 048
     Dates: start: 1996, end: 2006

REACTIONS (3)
  - Substance-induced psychotic disorder [None]
  - Parkinsonism [None]
  - Cyst [None]

NARRATIVE: CASE EVENT DATE: 200609
